FAERS Safety Report 6296696-2 (Version None)
Quarter: 2009Q3

REPORT INFORMATION
  Report Type: 
  Country: None (occurrence: None)
  Receive Date: 20090804
  Receipt Date: 20090727
  Transmission Date: 20100115
  Serious: Yes (Hospitalization)
  Sender: FDA-Public Use
  Company Number: US-ELI_LILLY_AND_COMPANY-US200907005877

PATIENT
  Sex: Female

DRUGS (1)
  1. HUMULIN 70/30 [Suspect]

REACTIONS (5)
  - CARDIAC PACEMAKER INSERTION [None]
  - DIZZINESS [None]
  - HOSPITALISATION [None]
  - NAUSEA [None]
  - VISUAL IMPAIRMENT [None]
